FAERS Safety Report 4973460-5 (Version None)
Quarter: 2006Q2

REPORT INFORMATION
  Report Type: 
  Country: None (occurrence: None)
  Receive Date: 20060414
  Receipt Date: 20060123
  Transmission Date: 20061013
  Serious: Yes (Death)
  Sender: FDA-Public Use
  Company Number: JP-BRISTOL-MYERS SQUIBB COMPANY-13262753

PATIENT
  Age: 58 Year
  Sex: Male

DRUGS (7)
  1. STOCRIN CAPS [Suspect]
     Indication: HIV INFECTION
     Route: 048
     Dates: start: 20040902, end: 20041119
  2. EPIVIR [Suspect]
     Indication: HIV INFECTION
     Route: 048
     Dates: start: 20040902, end: 20041119
  3. VIREAD [Suspect]
     Indication: HIV INFECTION
     Route: 048
     Dates: start: 20040902, end: 20041119
  4. DOXORUBICIN HCL [Suspect]
     Indication: LYMPHOMA
     Route: 042
     Dates: start: 20040813, end: 20041112
  5. CYCLOPHOSPHAMIDE [Suspect]
     Indication: LYMPHOMA
     Route: 042
     Dates: start: 20040813, end: 20041112
  6. VINCRISTINE SULFATE [Suspect]
     Indication: LYMPHOMA
     Route: 042
     Dates: start: 20040813, end: 20041112
  7. PREDNISOLONE [Concomitant]
     Dates: start: 20040813, end: 20041112

REACTIONS (2)
  - PNEUMONIA STAPHYLOCOCCAL [None]
  - RASH [None]
